FAERS Safety Report 24822154 (Version 1)
Quarter: 2025Q1

REPORT INFORMATION
  Report Type: Spontaneous
  Country: CA (occurrence: CA)
  Receive Date: 20250108
  Receipt Date: 20250108
  Transmission Date: 20250409
  Serious: Yes (Other)
  Sender: PFIZER
  Company Number: CA-PFIZER INC-202400174313

PATIENT
  Age: 62 Year
  Sex: Male

DRUGS (8)
  1. XELJANZ [Suspect]
     Active Substance: TOFACITINIB CITRATE
     Indication: Psoriatic arthropathy
     Dosage: 5 MG, 2X/DAY
     Route: 048
     Dates: start: 20210213
  2. XELJANZ [Suspect]
     Active Substance: TOFACITINIB CITRATE
     Indication: Psoriasis
  3. XELJANZ [Suspect]
     Active Substance: TOFACITINIB CITRATE
     Indication: Crohn^s disease
  4. CELEBREX [Concomitant]
     Active Substance: CELECOXIB
     Dosage: 200 MG, 2X/DAY
  5. CELEBREX [Concomitant]
     Active Substance: CELECOXIB
  6. DOXYCYCLINE [Concomitant]
     Active Substance: DOXYCYCLINE
     Indication: Uveitis
     Dosage: 100 MG, 1X/DAY
     Route: 065
     Dates: start: 202011
  7. ENBREL [Concomitant]
     Active Substance: ETANERCEPT
  8. TYLENOL [Concomitant]
     Active Substance: ACETAMINOPHEN
     Dosage: 1950 MG, 2X/DAY
     Route: 065

REACTIONS (8)
  - Spinal ligament ossification [Unknown]
  - Stress fracture [Unknown]
  - Blood pressure increased [Unknown]
  - Back pain [Unknown]
  - Fall [Unknown]
  - Joint injury [Unknown]
  - Osteoarthritis [Unknown]
  - Fibromyalgia [Unknown]
